FAERS Safety Report 15772839 (Version 2)
Quarter: 2020Q2

REPORT INFORMATION
  Report Type: Report from Study
  Country: KR (occurrence: KR)
  Receive Date: 20181228
  Receipt Date: 20200618
  Transmission Date: 20200713
  Serious: Yes (Death)
  Sender: FDA-Public Use
  Company Number: KR-PFIZER INC-2018530495

PATIENT

DRUGS (5)
  1. CYCLOPHOSPHAMIDE. [Suspect]
     Active Substance: CYCLOPHOSPHAMIDE
     Indication: DIFFUSE LARGE B-CELL LYMPHOMA
     Dosage: UNK UNK, CYCLIC (EVERY 3 WEEKS) WITH A TOTAL OF 6 CYCLES OF CHEMOTHERAPY
  2. DOXORUBICIN [Suspect]
     Active Substance: DOXORUBICIN
     Indication: DIFFUSE LARGE B-CELL LYMPHOMA
     Dosage: UNK UNK, CYCLIC (EVERY 3 WEEKS) WITH A TOTAL OF 6 CYCLES OF CHEMOTHERAPY
  3. PREDNISOLONE. [Suspect]
     Active Substance: PREDNISOLONE
     Indication: DIFFUSE LARGE B-CELL LYMPHOMA
     Dosage: UNK UNK, CYCLIC (EVERY 3 WEEKS) WITH A TOTAL OF 6 CYCLES OF CHEMOTHERAPY
  4. RITUXIMAB. [Suspect]
     Active Substance: RITUXIMAB
     Indication: DIFFUSE LARGE B-CELL LYMPHOMA
     Dosage: UNK UNK, CYCLIC (EVERY 3 WEEKS, REDUCED DOSE) WITH A TOTAL OF 6 CYCLES OF CHEMOTHERAPY
  5. VINCRISTINE SULFATE. [Suspect]
     Active Substance: VINCRISTINE SULFATE
     Indication: DIFFUSE LARGE B-CELL LYMPHOMA
     Dosage: UNK UNK, CYCLIC (EVERY 3 WEEKS) WITH A TOTAL OF 6 CYCLES OF CHEMOTHERAPY

REACTIONS (1)
  - Pneumonia [Fatal]
